FAERS Safety Report 23175428 (Version 1)
Quarter: 2023Q4

REPORT INFORMATION
  Report Type: Spontaneous
  Country: US (occurrence: US)
  Receive Date: 20231113
  Receipt Date: 20231113
  Transmission Date: 20240110
  Serious: No
  Sender: FDA-Public Use
  Company Number: US-BRISTOL-MYERS SQUIBB COMPANY-2023-146414

PATIENT
  Age: 67 Year
  Sex: Female
  Weight: 74.38 kg

DRUGS (4)
  1. REVLIMID [Suspect]
     Active Substance: LENALIDOMIDE
     Indication: Plasma cell myeloma
     Dosage: FREQUENCY: 21 DAYS ON 7 DAYS OFF
     Route: 048
     Dates: start: 20220218, end: 20230530
  2. REVLIMID [Suspect]
     Active Substance: LENALIDOMIDE
     Dosage: FREQUENCY: 21 DAYS ON 7 DAYS OFF
     Route: 048
     Dates: start: 2019
  3. HUMULIN 70/30 [Concomitant]
     Active Substance: INSULIN HUMAN
     Indication: Product used for unknown indication
  4. LEVOTHYROXINE [Concomitant]
     Active Substance: LEVOTHYROXINE
     Indication: Product used for unknown indication

REACTIONS (1)
  - Decreased immune responsiveness [Not Recovered/Not Resolved]
